FAERS Safety Report 6979646-2 (Version None)
Quarter: 2010Q3

REPORT INFORMATION
  Report Type: 
  Country: None (occurrence: None)
  Receive Date: 20100910
  Receipt Date: 20100910
  Transmission Date: 20110219
  Serious: Yes (Other)
  Sender: FDA-Public Use
  Company Number: None

PATIENT
  Sex: Female
  Weight: 71.2147 kg

DRUGS (1)
  1. HYDROCHLOROTHIAZIDE [Suspect]
     Indication: HYPERTENSION
     Dosage: 25MG  1/2 TABLET DAILY
     Dates: start: 20100801, end: 20100828

REACTIONS (6)
  - GLOSSODYNIA [None]
  - PRODUCT SUBSTITUTION ISSUE [None]
  - SWOLLEN TONGUE [None]
  - THROAT TIGHTNESS [None]
  - TONGUE COATED [None]
  - TONGUE DISCOLOURATION [None]
